FAERS Safety Report 11255899 (Version 1)
Quarter: 2015Q3

REPORT INFORMATION
  Report Type: Spontaneous
  Country: US (occurrence: US)
  Receive Date: 20150709
  Receipt Date: 20150709
  Transmission Date: 20151125
  Serious: Yes (Other)
  Sender: FDA-Public Use
  Company Number: US-ASTRAZENECA-2015SE65059

PATIENT
  Sex: Female

DRUGS (1)
  1. SYMBICORT [Suspect]
     Active Substance: BUDESONIDE\FORMOTEROL FUMARATE DIHYDRATE
     Indication: BRONCHIAL HYPERREACTIVITY
     Dosage: 2 PUFFS BID OCCASIONALLY , PRN
     Route: 055
     Dates: start: 2014

REACTIONS (3)
  - Intentional product misuse [Unknown]
  - Pulmonary mass [Unknown]
  - Pneumonitis [Unknown]

NARRATIVE: CASE EVENT DATE: 2014
